FAERS Safety Report 15570666 (Version 2)
Quarter: 2018Q4

REPORT INFORMATION
  Report Type: Spontaneous
  Country: GB (occurrence: GB)
  Receive Date: 20181031
  Receipt Date: 20181105
  Transmission Date: 20190205
  Serious: Yes (Other)
  Sender: FDA-Public Use
  Company Number: PHHY2016GB031209

PATIENT
  Age: 85 Year
  Sex: Female
  Weight: 74 kg

DRUGS (4)
  1. OMEPRAZOLE. [Suspect]
     Active Substance: OMEPRAZOLE
     Indication: PRODUCT USED FOR UNKNOWN INDICATION
     Dosage: UNK
     Route: 048
  2. PIOGLITAZONE. [Concomitant]
     Active Substance: PIOGLITAZONE
     Indication: GLYCOSYLATED HAEMOGLOBIN INCREASED
     Dosage: UNK
     Route: 065
  3. METFORMIN [Suspect]
     Active Substance: METFORMIN HYDROCHLORIDE
     Indication: TYPE 2 DIABETES MELLITUS
     Dosage: 500 MG, BID
     Route: 065
  4. LINAGLIPTIN [Concomitant]
     Active Substance: LINAGLIPTIN
     Indication: GLYCOSYLATED HAEMOGLOBIN INCREASED
     Dosage: UNK
     Route: 065

REACTIONS (6)
  - Weight decreased [Unknown]
  - Product use in unapproved indication [Unknown]
  - Irritable bowel syndrome [Unknown]
  - Osteopenia [Unknown]
  - Glycosylated haemoglobin increased [Recovering/Resolving]
  - Off label use [Unknown]

NARRATIVE: CASE EVENT DATE: 2013
